FAERS Safety Report 4809434-4 (Version None)
Quarter: 2005Q4

REPORT INFORMATION
  Report Type: 
  Country: None (occurrence: None)
  Receive Date: 20051021
  Receipt Date: 20051010
  Transmission Date: 20060501
  Serious: Yes (Other)
  Sender: FDA-Public Use
  Company Number: 2005117600

PATIENT
  Age: 60 Year
  Sex: Female
  Weight: 77.1115 kg

DRUGS (6)
  1. XANAX [Suspect]
     Indication: PANIC ATTACK
     Dosage: 6 MG (3 MG, 2 IN 1 D), ORAL
     Route: 048
     Dates: start: 20050309
  2. VALIUM [Suspect]
     Indication: PANIC ATTACK
     Dates: start: 20050101
  3. PLAVIX [Concomitant]
  4. TOPROL-XL [Concomitant]
  5. LIPITOR [Concomitant]
  6. KLONOPIN [Concomitant]

REACTIONS (5)
  - BLOOD PRESSURE INCREASED [None]
  - DRUG INEFFECTIVE [None]
  - DYSARTHRIA [None]
  - HEART RATE INCREASED [None]
  - INFLUENZA [None]
